FAERS Safety Report 7861942-8 (Version None)
Quarter: 2011Q4

REPORT INFORMATION
  Report Type: 
  Country: None (occurrence: None)
  Receive Date: 20111027
  Receipt Date: 20111013
  Transmission Date: 20120403
  Serious: Yes (Other)
  Sender: FDA-Public Use
  Company Number: US-NOVEN-11US003422

PATIENT
  Sex: Female

DRUGS (3)
  1. LITHIUM CARBONATE [Suspect]
     Indication: PRODUCT USED FOR UNKNOWN INDICATION
     Dosage: UNK
  2. GEODON [Concomitant]
  3. PROZAC [Concomitant]

REACTIONS (4)
  - STRESS [None]
  - MOOD SWINGS [None]
  - TREMOR [None]
  - FEELING ABNORMAL [None]
